FAERS Safety Report 6654196-1 (Version None)
Quarter: 2010Q1

REPORT INFORMATION
  Report Type: 
  Country: None (occurrence: None)
  Receive Date: 20100326
  Receipt Date: 20100326
  Transmission Date: 20100710
  Serious: Yes (Other)
  Sender: FDA-Public Use
  Company Number: GB-ABBOTT-10P-167-0629552-00

PATIENT
  Sex: Female
  Weight: 52.4 kg

DRUGS (2)
  1. HUMIRA [Suspect]
     Indication: RHEUMATOID ARTHRITIS
     Dosage: 4 DOSES TAKEN
     Route: 058
     Dates: start: 20100113, end: 20100224
  2. PREGABALIN [Concomitant]
     Indication: FIBROMYALGIA
     Route: 048
     Dates: start: 20090101

REACTIONS (10)
  - CHILLS [None]
  - EYE SWELLING [None]
  - FATIGUE [None]
  - HYPERSENSITIVITY [None]
  - LACRIMATION INCREASED [None]
  - OEDEMA PERIPHERAL [None]
  - OROPHARYNGEAL PAIN [None]
  - PYREXIA [None]
  - RASH PRURITIC [None]
  - SENSORY DISTURBANCE [None]
